FAERS Safety Report 24105599 (Version 1)
Quarter: 2024Q3

REPORT INFORMATION
  Report Type: Spontaneous
  Country: US (occurrence: US)
  Receive Date: 20240717
  Receipt Date: 20240717
  Transmission Date: 20241017
  Serious: No
  Sender: SANOFI AVENTIS
  Company Number: US-SA-SAC20240715000846

PATIENT
  Age: 59 Year
  Sex: Female

DRUGS (14)
  1. DUPIXENT [Suspect]
     Active Substance: DUPILUMAB
     Indication: Dermatitis atopic
     Dosage: 300 MG, QOW
     Route: 058
     Dates: start: 20230323, end: 202311
  2. DUPIXENT [Suspect]
     Active Substance: DUPILUMAB
     Dosage: 300 MG, QOW
     Route: 058
  3. AMLODIPINE [Concomitant]
     Active Substance: AMLODIPINE BESYLATE
  4. AZITHROMYCIN [Concomitant]
     Active Substance: AZITHROMYCIN
  5. BOOSTRIX [Concomitant]
     Active Substance: TETANUS TOXOID, REDUCED DIPHTHERIA TOXOID AND ACELLULAR PERTUSSIS VACCINE, ADSORBED ANTIGENS
  6. HYDROCHLOROTHIAZIDE [Concomitant]
     Active Substance: HYDROCHLOROTHIAZIDE
  7. CITALOPRAM [Concomitant]
     Active Substance: CITALOPRAM\CITALOPRAM HYDROBROMIDE
  8. DESONIDE [Concomitant]
     Active Substance: DESONIDE
  9. FLUTICASONE [Concomitant]
     Active Substance: FLUTICASONE
  10. LISINOPRIL [Concomitant]
     Active Substance: LISINOPRIL
  11. METFORMIN [Concomitant]
     Active Substance: METFORMIN HYDROCHLORIDE
  12. PREDNISONE [Concomitant]
     Active Substance: PREDNISONE
  13. REPATHA [Concomitant]
     Active Substance: EVOLOCUMAB
  14. VALSARTAN [Concomitant]
     Active Substance: VALSARTAN

REACTIONS (2)
  - Sleep disorder due to a general medical condition [Not Recovered/Not Resolved]
  - Rebound atopic dermatitis [Unknown]
